FAERS Safety Report 16844471 (Version 1)
Quarter: 2019Q3

REPORT INFORMATION
  Report Type: Spontaneous
  Country: JP (occurrence: JP)
  Receive Date: 20190924
  Receipt Date: 20190924
  Transmission Date: 20191005
  Serious: Yes (Hospitalization)
  Sender: FDA-Public Use
  Company Number: JP-HQ SPECIALTY-JP-2019INT000243

PATIENT
  Age: 43 Year
  Sex: Male

DRUGS (3)
  1. PACLITAXEL. [Suspect]
     Active Substance: PACLITAXEL
     Indication: SARCOMA
     Dosage: 80 MG/M2, WEEKLY
     Route: 065
  2. RADIOTHERAPY [Suspect]
     Active Substance: RADIATION THERAPY
     Indication: SARCOMA
     Dosage: 66 GY IN 2-GY FRACTIONS
     Route: 065
  3. PACLITAXEL. [Suspect]
     Active Substance: PACLITAXEL
     Dosage: 55 MG/M2, WEEKLY
     Route: 065

REACTIONS (3)
  - Aspartate aminotransferase increased [Unknown]
  - Liver injury [Unknown]
  - Alanine aminotransferase increased [Unknown]
